FAERS Safety Report 4755742-5 (Version None)
Quarter: 2005Q3

REPORT INFORMATION
  Report Type: 
  Country: None (occurrence: None)
  Receive Date: 20050830
  Receipt Date: 20050719
  Transmission Date: 20060218
  Serious: No
  Sender: FDA-Public Use
  Company Number: US-BRISTOL-MYERS SQUIBB COMPANY-13042668

PATIENT
  Sex: Female
  Weight: 56 kg

DRUGS (3)
  1. ABILIFY [Suspect]
     Indication: ANXIETY
  2. AMBIEN [Concomitant]
  3. NAPROXEN [Concomitant]

REACTIONS (2)
  - ALOPECIA [None]
  - INSOMNIA [None]
